FAERS Safety Report 23485749 (Version 4)
Quarter: 2025Q4

REPORT INFORMATION
  Report Type: Report from Study
  Country: CO (occurrence: CO)
  Receive Date: 20240206
  Receipt Date: 20251111
  Transmission Date: 20260117
  Serious: Yes (Hospitalization)
  Sender: NOVARTIS
  Company Number: CO-002147023-NVSC2024CO025153

PATIENT
  Age: 75 Year
  Sex: Male
  Weight: 60 kg

DRUGS (1)
  1. ELTROMBOPAG OLAMINE [Suspect]
     Active Substance: ELTROMBOPAG OLAMINE
     Indication: Bone marrow failure
     Dosage: 150 MG, QD
     Route: 048
     Dates: start: 20230501

REACTIONS (11)
  - Dehydration [Unknown]
  - Malnutrition [Unknown]
  - Oropharyngeal pain [Unknown]
  - Odynophagia [Unknown]
  - Gastritis [Unknown]
  - Feeding disorder [Unknown]
  - Malnutrition [Recovered/Resolved]
  - Oropharyngeal pain [Recovered/Resolved]
  - Feeding disorder [Recovered/Resolved]
  - Gastritis [Recovered/Resolved]
  - Product use in unapproved indication [Unknown]

NARRATIVE: CASE EVENT DATE: 20230501
